FAERS Safety Report 6931497-0 (Version None)
Quarter: 2010Q3

REPORT INFORMATION
  Report Type: 
  Country: None (occurrence: None)
  Receive Date: 20100816
  Receipt Date: 20100810
  Transmission Date: 20110219
  Serious: Yes (Death)
  Sender: FDA-Public Use
  Company Number: 2010SP043238

PATIENT
  Age: 84 Year
  Sex: Male

DRUGS (1)
  1. TICE BCG [Suspect]
     Indication: BLADDER CANCER
     Dosage: INVES

REACTIONS (8)
  - ACUTE RESPIRATORY DISTRESS SYNDROME [None]
  - DECREASED APPETITE [None]
  - DIFFUSE ALVEOLAR DAMAGE [None]
  - DISSEMINATED TUBERCULOSIS [None]
  - HYPERSENSITIVITY [None]
  - MYCOBACTERIAL INFECTION [None]
  - PNEUMONIA [None]
  - WEIGHT DECREASED [None]
